FAERS Safety Report 4675551-5 (Version None)
Quarter: 2005Q2

REPORT INFORMATION
  Report Type: 
  Country: None (occurrence: None)
  Receive Date: 20050527
  Receipt Date: 20050411
  Transmission Date: 20051028
  Serious: No
  Sender: FDA-Public Use
  Company Number: US-BRISTOL-MYERS SQUIBB COMPANY-12928396

PATIENT
  Age: 62 Year
  Sex: Male
  Weight: 102 kg

DRUGS (6)
  1. ABILIFY [Suspect]
     Indication: BIPOLAR II DISORDER
     Dosage: 30 MG/DAY AT TIME OF REPORT
  2. TEGRETOL [Concomitant]
  3. AMBIEN [Concomitant]
  4. VYTORIN [Concomitant]
     Dosage: 10/40
  5. IBROPROFEN [Concomitant]
  6. MOBIC [Concomitant]

REACTIONS (4)
  - DRUG INEFFECTIVE [None]
  - HUNGER [None]
  - POLLAKIURIA [None]
  - WEIGHT INCREASED [None]
